FAERS Safety Report 6960524-X (Version None)
Quarter: 2010Q3

REPORT INFORMATION
  Report Type: 
  Country: None (occurrence: None)
  Receive Date: 20100901
  Receipt Date: 20100819
  Transmission Date: 20110219
  Serious: Yes (Hospitalization)
  Sender: FDA-Public Use
  Company Number: US-JNJFOC-20100807106

PATIENT
  Sex: Female
  Weight: 97.52 kg

DRUGS (18)
  1. FENTANYL-100 [Suspect]
     Indication: OSTEOPOROSIS
     Route: 062
  2. FENTANYL CITRATE [Suspect]
     Indication: OSTEOPOROSIS
     Route: 062
  3. FENTANYL CITRATE [Suspect]
     Route: 062
  4. LORAZEPAM [Concomitant]
     Indication: ANXIETY
     Dosage: AS NEEDE UP FOUR TIMES DAILY
     Route: 048
  5. DIGOXIN [Concomitant]
     Indication: CARDIAC FAILURE CONGESTIVE
     Route: 048
  6. MORPHINE [Concomitant]
     Indication: PAIN
     Route: 048
  7. METHADONE [Concomitant]
     Indication: PAIN
     Route: 048
  8. LORTABS (ACETAMINOPHEN W/HYDROCODONE BITARTRATE) [Concomitant]
     Indication: BREAKTHROUGH PAIN
     Route: 048
  9. CYMBALTA [Concomitant]
     Indication: DEPRESSION
     Route: 048
  10. EFFEXOR [Concomitant]
     Indication: DEPRESSION
  11. ZOLOFT [Concomitant]
     Indication: DEPRESSION
     Route: 048
  12. SLO-BID [Concomitant]
     Indication: CHRONIC OBSTRUCTIVE PULMONARY DISEASE
     Route: 048
  13. XOPENEX [Concomitant]
     Indication: CHRONIC OBSTRUCTIVE PULMONARY DISEASE
     Dosage: EVERY 4-6 HPURS AS NEEDED
     Route: 055
  14. LASIX [Concomitant]
     Indication: OEDEMA
     Route: 048
  15. DIOVAN [Concomitant]
     Indication: HYPERTENSION
     Dosage: IF BLOOD PRESSURE IS ABOVE 130
     Route: 048
  16. PREDNISONE [Concomitant]
     Indication: CHRONIC OBSTRUCTIVE PULMONARY DISEASE
     Route: 048
  17. POTASSIUM [Concomitant]
     Indication: NUTRITIONAL SUPPORT
     Dosage: 50 MEQ/ TABLET/ 25 MEQ/ THREE TIMES DAILY
     Route: 048
  18. ALDACTONE [Concomitant]
     Indication: OEDEMA
     Route: 048

REACTIONS (6)
  - ABNORMAL BEHAVIOUR [None]
  - DEHYDRATION [None]
  - GAS POISONING [None]
  - PRODUCT ADHESION ISSUE [None]
  - SINUSITIS [None]
  - WRONG TECHNIQUE IN DRUG USAGE PROCESS [None]
